FAERS Safety Report 7086159-9 (Version None)
Quarter: 2010Q4

REPORT INFORMATION
  Report Type: 
  Country: None (occurrence: None)
  Receive Date: 20101018
  Receipt Date: 20101012
  Transmission Date: 20110411
  Serious: Yes (Hospitalization)
  Sender: FDA-Public Use
  Company Number: 2010026644

PATIENT
  Age: 55 Year
  Sex: Male
  Weight: 90.7 kg

DRUGS (1)
  1. VIVAGLOBIN [Suspect]
     Indication: IMMUNODEFICIENCY COMMON VARIABLE
     Dosage: (9.6 GM (60 ML) OVER 1-2 HOURS VIA 4 SITES WEEKLY SUBCUTANEOUS)
     Route: 058
     Dates: start: 20100917

REACTIONS (1)
  - GALLBLADDER DISORDER [None]
